FAERS Safety Report 21465336 (Version 1)
Quarter: 2022Q4

REPORT INFORMATION
  Report Type: Spontaneous
  Country: US (occurrence: None)
  Receive Date: 20221014
  Receipt Date: 20221014
  Transmission Date: 20230113
  Serious: No
  Sender: FDA-Public Use
  Company Number: None

PATIENT
  Age: 43 Year
  Sex: Male
  Weight: 107 kg

DRUGS (1)
  1. VANCOMYCIN HYDROCHLORIDE [Suspect]
     Active Substance: VANCOMYCIN HYDROCHLORIDE
     Indication: Osteomyelitis
     Dosage: OTHER STRENGTH : 1GM/VIL;?FREQUENCY : TWICE A DAY;?
     Route: 042
     Dates: start: 20220314, end: 20220317

REACTIONS (1)
  - Renal tubular necrosis [None]

NARRATIVE: CASE EVENT DATE: 20220321
